FAERS Safety Report 16424742 (Version 1)
Quarter: 2019Q2

REPORT INFORMATION
  Report Type: Spontaneous
  Country: US (occurrence: US)
  Receive Date: 20190613
  Receipt Date: 20190613
  Transmission Date: 20190711
  Serious: No
  Sender: FDA-Public Use
  Company Number: US-ASTRAZENECA-2019SE75346

PATIENT

DRUGS (1)
  1. SYMBICORT [Suspect]
     Active Substance: BUDESONIDE\FORMOTEROL FUMARATE DIHYDRATE
     Dosage: UNK UNKNOWN
     Route: 055

REACTIONS (5)
  - Device issue [Unknown]
  - Malaise [Unknown]
  - Underdose [Unknown]
  - Cough [Unknown]
  - Circumstance or information capable of leading to medication error [Unknown]
